FAERS Safety Report 10426073 (Version 3)
Quarter: 2014Q4

REPORT INFORMATION
  Report Type: Spontaneous
  Country: US (occurrence: US)
  Receive Date: 20140903
  Receipt Date: 20141002
  Transmission Date: 20150528
  Serious: Yes (Hospitalization)
  Sender: FDA-Public Use
  Company Number: US-UNITED THERAPEUTICS-UNT-2014-006028

PATIENT
  Age: 40 Year
  Sex: Female
  Weight: 55.1 kg

DRUGS (1)
  1. REMODULIN [Suspect]
     Active Substance: TREPROSTINIL
     Indication: COR PULMONALE CHRONIC
     Dosage: 0.121 ?G/KG, CONTINUING
     Route: 041
     Dates: start: 20080915

REACTIONS (4)
  - Cardiac failure congestive [Unknown]
  - Incorrect dose administered [Recovering/Resolving]
  - Pulmonary arterial hypertension [Unknown]
  - Weight decreased [Recovering/Resolving]

NARRATIVE: CASE EVENT DATE: 20140814
